FAERS Safety Report 18797835 (Version 1)
Quarter: 2021Q1

REPORT INFORMATION
  Report Type: Spontaneous
  Country: IE (occurrence: IE)
  Receive Date: 20210128
  Receipt Date: 20210128
  Transmission Date: 20210419
  Serious: No
  Sender: FDA-Public Use
  Company Number: IE-ALKEM LABORATORIES LIMITED-IE-ALKEM-2020-09330

PATIENT
  Age: 12 Year
  Sex: Male

DRUGS (2)
  1. METHYLPHENIDATE HYDROCHLORIDE. [Suspect]
     Active Substance: METHYLPHENIDATE HYDROCHLORIDE
     Indication: ATTENTION DEFICIT HYPERACTIVITY DISORDER
     Dosage: 18 MILLIGRAM (EVERY MORNING)
     Route: 048
  2. METHYLPHENIDATE HYDROCHLORIDE. [Suspect]
     Active Substance: METHYLPHENIDATE HYDROCHLORIDE
     Dosage: 36 MILLIGRAM, QD
     Route: 048

REACTIONS (2)
  - Painful erection [Recovered/Resolved]
  - Erection increased [Recovered/Resolved]
